FAERS Safety Report 13710729 (Version 1)
Quarter: 2017Q2

REPORT INFORMATION
  Report Type: Spontaneous
  Country: US (occurrence: US)
  Receive Date: 20170630
  Receipt Date: 20170630
  Transmission Date: 20170830
  Serious: Yes (Disabling)
  Sender: FDA-Public Use
  Company Number: None

PATIENT
  Age: 72 Year
  Sex: Female
  Weight: 85.05 kg

DRUGS (1)
  1. LEVAQUIN [Suspect]
     Active Substance: LEVOFLOXACIN

REACTIONS (6)
  - Trigger finger [None]
  - Malaise [None]
  - Exostosis [None]
  - Paraesthesia [None]
  - Hypoaesthesia [None]
  - Tendonitis [None]

NARRATIVE: CASE EVENT DATE: 20170115
